FAERS Safety Report 7290123 (Version 6)
Quarter: 2013Q3

REPORT INFORMATION
  Report Type: Spontaneous
  Country: JP (occurrence: JP)
  Receive Date: 20100223
  Receipt Date: 20130906
  Transmission Date: 20140515
  Serious: Yes (Other)
  Sender: FDA-Public Use
  Company Number: PHHY2010JP08196

PATIENT
  Sex: 0

DRUGS (4)
  1. NEORAL [Suspect]
     Route: 064
  2. PREDNISOLONE [Suspect]
     Dosage: MATERNAL DOSE:10MG
     Route: 064
  3. IMURAN [Suspect]
     Route: 064
  4. APRESOLIN [Suspect]
     Route: 064

REACTIONS (4)
  - Foetal distress syndrome [Recovered/Resolved]
  - Neonatal asphyxia [Recovered/Resolved]
  - Premature baby [Unknown]
  - Foetal exposure during pregnancy [Unknown]
